FAERS Safety Report 23298847 (Version 3)
Quarter: 2024Q4

REPORT INFORMATION
  Report Type: Spontaneous
  Country: JP (occurrence: JP)
  Receive Date: 20231215
  Receipt Date: 20241022
  Transmission Date: 20250115
  Serious: Yes (Hospitalization, Other)
  Sender: ELI LILLY AND COMPANY
  Company Number: JP-ELI_LILLY_AND_COMPANY-JP202312003347

PATIENT
  Age: 48 Year
  Sex: Female

DRUGS (5)
  1. OMVOH [Suspect]
     Active Substance: MIRIKIZUMAB-MRKZ
     Indication: Colitis ulcerative
     Dosage: 300 MG, UNKNOWN
     Route: 041
  2. MESALAMINE [Concomitant]
     Active Substance: MESALAMINE
     Dosage: 4000 MG
  3. MEROPENEM [Concomitant]
     Active Substance: MEROPENEM
  4. TACROLIMUS [Concomitant]
     Active Substance: TACROLIMUS
     Dosage: UNK
     Route: 048
  5. METHOTREXATE [Concomitant]
     Active Substance: METHOTREXATE
     Dosage: UNK
     Route: 048

REACTIONS (3)
  - Colitis ulcerative [Recovering/Resolving]
  - COVID-19 [Unknown]
  - Therapeutic product effect incomplete [Unknown]
